FAERS Safety Report 7168149-0 (Version None)
Quarter: 2010Q4

REPORT INFORMATION
  Report Type: 
  Country: None (occurrence: None)
  Receive Date: 20101216
  Receipt Date: 20101214
  Transmission Date: 20110411
  Serious: Yes (Other)
  Sender: FDA-Public Use
  Company Number: GB-PFIZER INC-2010129709

PATIENT
  Age: 43 Year
  Sex: Male
  Weight: 105 kg

DRUGS (3)
  1. CHANTIX [Suspect]
     Dosage: 1 MG, 2X/DAY
     Route: 048
     Dates: start: 20100903, end: 20101001
  2. SOLPADOL [Concomitant]
     Indication: BACK PAIN
     Dosage: 500/30 UNK
     Route: 048
     Dates: start: 20020701
  3. RANITIDINE [Concomitant]
     Indication: PROPHYLAXIS
     Dosage: 150 MG, UNK
     Route: 048
     Dates: start: 20010101

REACTIONS (3)
  - MOOD ALTERED [None]
  - NAUSEA [None]
  - PARAESTHESIA [None]
